FAERS Safety Report 25598184 (Version 1)
Quarter: 2025Q3

REPORT INFORMATION
  Report Type: Spontaneous
  Country: CA (occurrence: CA)
  Receive Date: 20250723
  Receipt Date: 20250723
  Transmission Date: 20251020
  Serious: Yes (Other)
  Sender: DR REDDYS
  Company Number: None

PATIENT
  Age: 41 Year
  Sex: Male

DRUGS (8)
  1. ZOLEDRONIC ACID [Suspect]
     Active Substance: ZOLEDRONIC ACID
     Indication: Parathyroid tumour malignant
     Route: 065
  2. CAPECITABINE [Suspect]
     Active Substance: CAPECITABINE
     Indication: Parathyroid tumour malignant
     Route: 065
  3. CISPLATIN [Suspect]
     Active Substance: CISPLATIN
     Indication: Parathyroid tumour malignant
     Route: 042
  4. CISPLATIN [Suspect]
     Active Substance: CISPLATIN
     Route: 065
  5. DENOSUMAB [Suspect]
     Active Substance: DENOSUMAB
     Indication: Parathyroid tumour malignant
     Route: 065
  6. ETOPOSIDE [Suspect]
     Active Substance: ETOPOSIDE
     Indication: Parathyroid tumour malignant
     Route: 065
  7. SORAFENIB [Suspect]
     Active Substance: SORAFENIB
     Indication: Parathyroid tumour malignant
     Route: 065
  8. TEMOZOLOMIDE [Suspect]
     Active Substance: TEMOZOLOMIDE
     Indication: Parathyroid tumour malignant
     Route: 065

REACTIONS (8)
  - Malignant neoplasm progression [Unknown]
  - Metastases to liver [Unknown]
  - Metastases to lung [Unknown]
  - Metastases to lymph nodes [Unknown]
  - Metastases to peritoneum [Unknown]
  - Metastasis [Unknown]
  - Parathyroid tumour malignant [Unknown]
  - Product use in unapproved indication [Unknown]
